FAERS Safety Report 6987826-5 (Version None)
Quarter: 2010Q3

REPORT INFORMATION
  Report Type: 
  Country: None (occurrence: None)
  Receive Date: 20100914
  Receipt Date: 20100907
  Transmission Date: 20110219
  Serious: Yes (Death, Other)
  Sender: FDA-Public Use
  Company Number: 2010JP005288

PATIENT
  Age: 43 Year
  Sex: Male

DRUGS (10)
  1. TACROLIMUS [Suspect]
     Indication: STEM CELL TRANSPLANT
  2. MYCOPHENOLATE (MYCOPHENOLATE MOFETIL) FORMULATION UNKNOWN [Suspect]
     Indication: STEM CELL TRANSPLANT
  3. INFLIXIMAB (INFLIXIMAB) FORMULATION UNKNOWN [Suspect]
     Indication: STEM CELL TRANSPLANT
  4. VORICONAZOLE [Concomitant]
  5. POSACONAZOLE [Concomitant]
  6. TERBINAFINE HCL [Concomitant]
  7. CASPOFUNGIN (CASPOFUNGIN) [Concomitant]
  8. AMPHOTERICIN B [Concomitant]
  9. TERBINAFINE HCL [Concomitant]
  10. PREDNISOLONE [Concomitant]

REACTIONS (7)
  - CHORIORETINITIS [None]
  - FUNGAL INFECTION [None]
  - FUNGAL SKIN INFECTION [None]
  - RETINAL EXUDATES [None]
  - RETINAL HAEMORRHAGE [None]
  - SCOTOMA [None]
  - VISUAL ACUITY REDUCED [None]
